FAERS Safety Report 14515021 (Version 1)
Quarter: 2018Q1

REPORT INFORMATION
  Report Type: Spontaneous
  Country: DK (occurrence: DK)
  Receive Date: 20180209
  Receipt Date: 20180209
  Transmission Date: 20180509
  Serious: Yes (Disabling)
  Sender: FDA-Public Use
  Company Number: DK-CONCORDIA PHARMACEUTICALS INC.-E2B_00009793

PATIENT
  Age: 46 Year
  Sex: Female

DRUGS (8)
  1. PREDNISOLONE. [Suspect]
     Active Substance: PREDNISOLONE
     Indication: RENAL TRANSPLANT
     Dosage: DOSIS: 500 MG DAGLIGT, MED AFTRAPNING TIL 7.5 MG OG SENERE 5 MG
     Dates: start: 19991124, end: 20160729
  2. FURIX [Concomitant]
     Active Substance: FUROSEMIDE
  3. ETALPHA [Concomitant]
     Active Substance: ALFACALCIDOL
  4. CELLCEPT [Concomitant]
     Active Substance: MYCOPHENOLATE MOFETIL\MYCOPHENOLATE MOFETIL HYDROCHLORIDE
  5. SIMVASTATIN. [Concomitant]
     Active Substance: SIMVASTATIN
  6. CARVEDILOL. [Concomitant]
     Active Substance: CARVEDILOL
  7. SANDIMMUN [Concomitant]
     Active Substance: CYCLOSPORINE
  8. CORODIL (ENALAPRIL MALEATE) [Concomitant]
     Active Substance: ENALAPRIL MALEATE

REACTIONS (5)
  - Gait disturbance [Not Recovered/Not Resolved]
  - Impaired work ability [Not Recovered/Not Resolved]
  - Arthropathy [Not Recovered/Not Resolved]
  - Muscular weakness [Not Recovered/Not Resolved]
  - Myopathy [Not Recovered/Not Resolved]

NARRATIVE: CASE EVENT DATE: 2009
